FAERS Safety Report 23304305 (Version 2)
Quarter: 2024Q1

REPORT INFORMATION
  Report Type: Spontaneous
  Country: JP (occurrence: JP)
  Receive Date: 20231218
  Receipt Date: 20240201
  Transmission Date: 20240409
  Serious: Yes (Death, Other)
  Sender: FDA-Public Use
  Company Number: JP-UNITED THERAPEUTICS-UNT-2023-035941

PATIENT
  Age: 54 Year
  Sex: Male
  Weight: 54 kg

DRUGS (6)
  1. TYVASO [Suspect]
     Active Substance: TREPROSTINIL
     Indication: Pulmonary arterial hypertension
     Dosage: 54 ?G, QID
     Dates: start: 20230608, end: 20231208
  2. REVATIO [Concomitant]
     Active Substance: SILDENAFIL CITRATE
     Indication: Pulmonary arterial hypertension
     Dosage: 60 MG, QD
     Route: 065
     Dates: start: 202204
  3. FUROSEMIDE [Concomitant]
     Active Substance: FUROSEMIDE
     Indication: Pulmonary arterial hypertension
     Dosage: 120 MG, QD
     Route: 065
     Dates: start: 202209
  4. SAMSCA [Concomitant]
     Active Substance: TOLVAPTAN
     Indication: Pulmonary arterial hypertension
     Dosage: 15 MG, QD
     Route: 065
     Dates: start: 202209
  5. PREDNISOLONE [Concomitant]
     Active Substance: PREDNISOLONE
     Indication: Interstitial lung disease
     Dosage: 12 MG, QD
     Route: 065
     Dates: start: 201608
  6. OFEV [Concomitant]
     Active Substance: NINTEDANIB
     Indication: Interstitial lung disease
     Dosage: 150 MG, QD
     Route: 065
     Dates: start: 202103

REACTIONS (2)
  - Hypoxia [Fatal]
  - Interstitial lung disease [Fatal]

NARRATIVE: CASE EVENT DATE: 20230101
